FAERS Safety Report 5532232-3 (Version None)
Quarter: 2007Q4

REPORT INFORMATION
  Report Type: 
  Country: None (occurrence: None)
  Receive Date: 20071203
  Receipt Date: 20071122
  Transmission Date: 20080405
  Serious: Yes (Hospitalization)
  Sender: FDA-Public Use
  Company Number: ES-JNJFOC-20071002143

PATIENT
  Age: 32 Year
  Sex: Male
  Weight: 77 kg

DRUGS (1)
  1. REMICADE [Suspect]
     Indication: ANKYLOSING SPONDYLITIS
     Dosage: 16 TOTAL INFUSIONS
     Route: 042

REACTIONS (1)
  - PULMONARY TUBERCULOSIS [None]
